FAERS Safety Report 10854488 (Version 2)
Quarter: 2015Q1

REPORT INFORMATION
  Report Type: Spontaneous
  Country: DE (occurrence: None)
  Receive Date: 20150218
  Receipt Date: 20150303
  Transmission Date: 20150721
  Serious: Yes (Hospitalization)
  Sender: FDA-Public Use
  Company Number: 2015FE00390

PATIENT
  Age: 76 Year
  Sex: Female

DRUGS (3)
  1. L-THYROXINE /000658001/ (LEVOTHYROXINE) [Concomitant]
  2. PICOPREP [Suspect]
     Active Substance: CITRIC ACID MONOHYDRATE\MAGNESIUM OXIDE\SODIUM PICOSULFATE
     Indication: BOWEL PREPARATION
     Route: 048
     Dates: start: 20141124, end: 20141125
  3. PICOPREP [Suspect]
     Active Substance: CITRIC ACID MONOHYDRATE\MAGNESIUM OXIDE\SODIUM PICOSULFATE
     Indication: COLONOSCOPY
     Route: 048
     Dates: start: 20141124, end: 20141125

REACTIONS (6)
  - Hypoosmolar state [None]
  - Blood pressure increased [None]
  - Brain oedema [None]
  - Loss of consciousness [None]
  - Hyponatraemic encephalopathy [None]
  - Hypokalaemia [None]

NARRATIVE: CASE EVENT DATE: 20141125
